FAERS Safety Report 21190253 (Version 3)
Quarter: 2022Q3

REPORT INFORMATION
  Report Type: Spontaneous
  Country: GB (occurrence: GB)
  Receive Date: 20220809
  Receipt Date: 20220916
  Transmission Date: 20221027
  Serious: Yes (Other)
  Sender: FDA-Public Use
  Company Number: GB-BAYER-2022A110731

PATIENT
  Age: 33 Year
  Sex: Female

DRUGS (1)
  1. MIRENA [Suspect]
     Active Substance: LEVONORGESTREL
     Dosage: 20?G/DAY
     Route: 015
     Dates: start: 20210305, end: 20220728

REACTIONS (10)
  - Uterine perforation [Recovering/Resolving]
  - Device breakage [Recovering/Resolving]
  - Procedural haemorrhage [Recovering/Resolving]
  - Genital haemorrhage [Recovering/Resolving]
  - Procedural pain [Recovering/Resolving]
  - Complication of device insertion [Recovering/Resolving]
  - Medical device pain [Recovering/Resolving]
  - Medical device discomfort [Recovering/Resolving]
  - Procedural pain [Recovering/Resolving]
  - Complication of device removal [Recovering/Resolving]

NARRATIVE: CASE EVENT DATE: 20210101
